FAERS Safety Report 21307950 (Version 1)
Quarter: 2022Q3

REPORT INFORMATION
  Report Type: Spontaneous
  Country: US (occurrence: None)
  Receive Date: 20220907
  Receipt Date: 20220907
  Transmission Date: 20221027
  Serious: Yes (Life-Threatening, Disabling)
  Sender: FDA-Public Use
  Company Number: None

PATIENT
  Age: 52 Year
  Sex: Female
  Weight: 85.5 kg

DRUGS (15)
  1. SYMBICORT [Suspect]
     Active Substance: BUDESONIDE\FORMOTEROL FUMARATE DIHYDRATE
     Indication: Asthma
     Dosage: OTHER QUANTITY : 120 INHALATION(S);?FREQUENCY : DAILY;?
     Route: 055
     Dates: start: 20220702, end: 20220905
  2. Risperidone 0.25 mg/day [Concomitant]
  3. buproprion 300 mg/day [Concomitant]
  4. sertraline 200 mg/day [Concomitant]
  5. levothyroxine 75 mcg/day [Concomitant]
  6. Atomoxetine 40 mg/day [Concomitant]
  7. Zyrtec 10 mg/day [Concomitant]
  8. gabapentin 100 mg/day [Concomitant]
  9. AZELASTINE [Concomitant]
     Active Substance: AZELASTINE
  10. FLUTICASONE [Concomitant]
     Active Substance: FLUTICASONE
  11. sumatriptan 50 mg Multivitamin [Concomitant]
  12. VITAMIN B COMPLEX [Concomitant]
     Active Substance: CYANOCOBALAMIN\DEXPANTHENOL\NIACINAMIDE\PYRIDOXINE HYDROCHLORIDE\RIBOFLAVIN 5^-PHOSPHATE SODIUM\THIA
  13. GARLIC [Concomitant]
     Active Substance: GARLIC
  14. COLLAGEN [Concomitant]
     Active Substance: COLLAGEN
  15. CALCIUM\VITAMIN D [Concomitant]
     Active Substance: CALCIUM\VITAMIN D

REACTIONS (4)
  - Mood swings [None]
  - Respiration abnormal [None]
  - Suicidal ideation [None]
  - Crying [None]

NARRATIVE: CASE EVENT DATE: 20220904
